FAERS Safety Report 8133462-7 (Version None)
Quarter: 2012Q1

REPORT INFORMATION
  Report Type: 
  Country: None (occurrence: None)
  Receive Date: 20120103
  Receipt Date: 20111110
  Transmission Date: 20120608
  Serious: No
  Sender: FDA-Public Use
  Company Number: AE-2011-003330

PATIENT
  Age: 57 Year
  Sex: Male
  Weight: 81.6475 kg

DRUGS (12)
  1. ENALAPRIL MALEATE [Concomitant]
  2. NITROGLYCERIN [Concomitant]
  3. ASPIRIN [Concomitant]
  4. RIBAVIRIN [Concomitant]
  5. CARVEDILOL [Concomitant]
  6. AMBIEN [Concomitant]
  7. PLAVIX [Concomitant]
  8. PEGASYS [Concomitant]
  9. INCIVEK [Suspect]
     Dosage: 2250 MG (750 MG,1 IN 8 HR)
     Dates: start: 20111108
  10. NORVASC [Concomitant]
  11. NAPROXEN [Concomitant]
  12. JANUVIA [Concomitant]

REACTIONS (5)
  - HEADACHE [None]
  - NIGHT SWEATS [None]
  - FATIGUE [None]
  - PRURITUS [None]
  - NAUSEA [None]
